FAERS Safety Report 7755428-9 (Version None)
Quarter: 2011Q3

REPORT INFORMATION
  Report Type: 
  Country: None (occurrence: None)
  Receive Date: 20110916
  Receipt Date: 20110907
  Transmission Date: 20111222
  Serious: Yes (Hospitalization)
  Sender: FDA-Public Use
  Company Number: IT-JNJFOC-20110812313

PATIENT
  Age: 13 Year
  Sex: Female

DRUGS (8)
  1. SULFASALAZINE [Concomitant]
     Indication: CROHN'S DISEASE
     Route: 065
  2. REMICADE [Suspect]
     Indication: CROHN'S DISEASE
     Route: 042
     Dates: start: 20110505
  3. CHLOR-TRIMETON [Concomitant]
     Indication: PREMEDICATION
     Route: 065
  4. REMICADE [Suspect]
     Route: 042
     Dates: start: 20110824, end: 20110824
  5. DEURSIL [Concomitant]
     Indication: CHOLANGITIS SCLEROSING
     Route: 065
  6. CIPROFLOXACIN [Concomitant]
     Indication: ANAL FISTULA
     Route: 065
  7. SULFASALAZINE [Concomitant]
     Dosage: 250MG+500MG
     Route: 065
  8. FLEBOCORTID [Concomitant]
     Indication: PREMEDICATION
     Route: 065

REACTIONS (9)
  - VOMITING [None]
  - DYSPNOEA [None]
  - INFUSION RELATED REACTION [None]
  - ERYTHEMA [None]
  - TACHYCARDIA [None]
  - CIRCUMORAL OEDEMA [None]
  - EYELID OEDEMA [None]
  - RESPIRATORY FATIGUE [None]
  - FACE OEDEMA [None]
